FAERS Safety Report 22186588 (Version 1)
Quarter: 2023Q2

REPORT INFORMATION
  Report Type: Spontaneous
  Country: CA (occurrence: CA)
  Receive Date: 20230407
  Receipt Date: 20230407
  Transmission Date: 20230721
  Serious: Yes (Life-Threatening, Hospitalization, Other)
  Sender: FDA-Public Use
  Company Number: CA-TEVA-2023-CA-2872961

PATIENT
  Age: 57 Year
  Sex: Male
  Weight: 50 kg

DRUGS (3)
  1. SULFAMETHOXAZOLE\TRIMETHOPRIM [Suspect]
     Active Substance: SULFAMETHOXAZOLE\TRIMETHOPRIM
     Indication: Antifungal prophylaxis
     Dosage: 1 DOSAGE FORMS DAILY; THERAPY DURATION : 9.0 DAYS
     Route: 048
  2. BIKTARVY [Concomitant]
     Active Substance: BICTEGRAVIR SODIUM\EMTRICITABINE\TENOFOVIR ALAFENAMIDE FUMARATE
     Indication: Product used for unknown indication
  3. SAGE [Concomitant]
     Active Substance: SAGE
     Indication: Product used for unknown indication

REACTIONS (6)
  - Drug reaction with eosinophilia and systemic symptoms [Unknown]
  - Gastrointestinal disorder [Unknown]
  - Mouth ulceration [Unknown]
  - Myalgia [Unknown]
  - Rash [Unknown]
  - Eosinophil count normal [Unknown]
